FAERS Safety Report 8484104-2 (Version None)
Quarter: 2012Q2

REPORT INFORMATION
  Report Type: 
  Country: None (occurrence: None)
  Receive Date: 20120627
  Receipt Date: 20120627
  Transmission Date: 20120825
  Serious: No
  Sender: FDA-Public Use
  Company Number: None

PATIENT
  Sex: Male
  Weight: 42.4 kg

DRUGS (2)
  1. METHOTREXATE [Suspect]
     Dosage: 140 MG
     Dates: end: 20080714
  2. ELSPAR [Suspect]
     Dosage: 21200 UNIT
     Dates: end: 20080715

REACTIONS (2)
  - DEPRESSION [None]
  - MUSCULAR WEAKNESS [None]
